FAERS Safety Report 8269657-1 (Version None)
Quarter: 2012Q2

REPORT INFORMATION
  Report Type: 
  Country: None (occurrence: None)
  Receive Date: 20120410
  Receipt Date: 20120327
  Transmission Date: 20120825
  Serious: Yes (Death, Hospitalization, Other)
  Sender: FDA-Public Use
  Company Number: IT-AMGEN-ITASP2011057200

PATIENT
  Age: 45 Year
  Sex: Male

DRUGS (2)
  1. METHOTREXATE SODIUM [Suspect]
     Indication: PSORIATIC ARTHROPATHY
     Dosage: 10 MG, WEEKLY
     Route: 058
     Dates: start: 20110401, end: 20110901
  2. ENBREL [Suspect]
     Indication: PSORIATIC ARTHROPATHY
     Dosage: 50 MG, WEEKLY
     Route: 058
     Dates: start: 20040101, end: 20110901

REACTIONS (38)
  - JOINT EFFUSION [None]
  - SCIATICA [None]
  - NO THERAPEUTIC RESPONSE [None]
  - MULTIPLE-DRUG RESISTANCE [None]
  - SHOCK HAEMORRHAGIC [None]
  - SEPTIC SHOCK [None]
  - ESCHERICHIA TEST POSITIVE [None]
  - ENTEROCOCCUS TEST POSITIVE [None]
  - VENTRICULAR TACHYCARDIA [None]
  - PULSE ABSENT [None]
  - ANAEMIA [None]
  - HAEMODILUTION [None]
  - MELAENA [None]
  - GASTRITIS EROSIVE [None]
  - SPINAL CORD HAEMORRHAGE [None]
  - URINARY TRACT INFECTION [None]
  - THROMBOSIS [None]
  - OPHTHALMOLOGICAL EXAMINATION ABNORMAL [None]
  - VASCULITIS [None]
  - ERECTILE DYSFUNCTION [None]
  - METABOLIC ACIDOSIS [None]
  - SLEEP APNOEA SYNDROME [None]
  - ACINETOBACTER TEST POSITIVE [None]
  - INTESTINAL HAEMORRHAGE [None]
  - VENTRICULAR FIBRILLATION [None]
  - PULMONARY HAEMORRHAGE [None]
  - CEREBRAL HAEMORRHAGE [None]
  - MYELITIS [None]
  - GROIN PAIN [None]
  - GAIT DISTURBANCE [None]
  - MULTI-ORGAN FAILURE [None]
  - URINARY RETENTION [None]
  - INTERVERTEBRAL DISC PROTRUSION [None]
  - AXONAL NEUROPATHY [None]
  - LARGE INTESTINAL ULCER [None]
  - PARAPLEGIA [None]
  - DYSKINESIA [None]
  - SENSORY LOSS [None]
